FAERS Safety Report 14573943 (Version 1)
Quarter: 2018Q1

REPORT INFORMATION
  Report Type: Spontaneous
  Country: US (occurrence: US)
  Receive Date: 20180226
  Receipt Date: 20180226
  Transmission Date: 20180509
  Serious: No
  Sender: FDA-Public Use
  Company Number: US-GE HEALTHCARE LIFE SCIENCES-2018CSU000475

PATIENT
  Age: 51 Year
  Sex: Male
  Weight: 118.8 kg

DRUGS (1)
  1. VISIPAQUE [Suspect]
     Active Substance: IODIXANOL
     Indication: KIDNEY DUPLEX
     Dosage: 145 ML, SINGLE
     Route: 042
     Dates: start: 20180125, end: 20180125

REACTIONS (4)
  - Pruritus generalised [Unknown]
  - Generalised erythema [Unknown]
  - Swollen tongue [Unknown]
  - Swelling face [Unknown]

NARRATIVE: CASE EVENT DATE: 20180125
